FAERS Safety Report 7047334-2 (Version None)
Quarter: 2010Q4

REPORT INFORMATION
  Report Type: 
  Country: None (occurrence: None)
  Receive Date: 20101015
  Receipt Date: 20101006
  Transmission Date: 20110411
  Serious: Yes (Other)
  Sender: FDA-Public Use
  Company Number: PHHY2010JP66999

PATIENT

DRUGS (1)
  1. TEGRETOL [Suspect]
     Dosage: UNK

REACTIONS (5)
  - ALTERED STATE OF CONSCIOUSNESS [None]
  - ATAXIA [None]
  - ENCEPHALOPATHY [None]
  - EPILEPSY [None]
  - NYSTAGMUS [None]
